FAERS Safety Report 15764712 (Version 2)
Quarter: 2025Q3

REPORT INFORMATION
  Report Type: Spontaneous
  Country: CN (occurrence: CN)
  Receive Date: 20181227
  Receipt Date: 20250813
  Transmission Date: 20251021
  Serious: Yes (Hospitalization, Other)
  Sender: ASTELLAS
  Company Number: CN-MLMSERVICE-20181218-1536015-1

PATIENT
  Age: 44 Year
  Sex: Male

DRUGS (5)
  1. TACROLIMUS [Suspect]
     Active Substance: TACROLIMUS
     Indication: Renal transplant
     Route: 065
  2. TACROLIMUS [Suspect]
     Active Substance: TACROLIMUS
     Dosage: REDUCTION
     Route: 065
  3. MYCOPHENOLATE MOFETIL [Concomitant]
     Active Substance: MYCOPHENOLATE MOFETIL
     Indication: Renal transplant
     Route: 065
  4. MYCOPHENOLATE MOFETIL [Concomitant]
     Active Substance: MYCOPHENOLATE MOFETIL
     Dosage: REDUCTION
     Route: 065
  5. PREDNISOLONE [Concomitant]
     Active Substance: PREDNISOLONE
     Indication: Renal transplant
     Route: 065

REACTIONS (6)
  - Plasma cell myeloma [Recovering/Resolving]
  - Plasmacytoma [Recovering/Resolving]
  - Post transplant lymphoproliferative disorder [Recovering/Resolving]
  - Hepatitis C [Unknown]
  - Herpes zoster [Unknown]
  - Epstein-Barr virus infection [Unknown]
